FAERS Safety Report 7398737-8 (Version None)
Quarter: 2011Q2

REPORT INFORMATION
  Report Type: 
  Country: None (occurrence: None)
  Receive Date: 20110401
  Receipt Date: 20110401
  Transmission Date: 20111010
  Serious: Yes (Life-Threatening, Hospitalization)
  Sender: FDA-Public Use
  Company Number: None

PATIENT
  Age: 40 Year
  Sex: Female
  Weight: 77.1115 kg

DRUGS (4)
  1. IV STEROIDS [Concomitant]
  2. LAMOTRIGINE [Suspect]
     Indication: BIPOLAR DISORDER
     Dosage: 200MG DAILY PO
     Route: 048
     Dates: start: 20080801, end: 20110318
  3. ORAL STEROIDS [Concomitant]
  4. ANTIBIOTICS [Concomitant]

REACTIONS (6)
  - ANAPHYLACTIC SHOCK [None]
  - STEVENS-JOHNSON SYNDROME [None]
  - HYPERSENSITIVITY [None]
  - RASH [None]
  - BURNS SECOND DEGREE [None]
  - VISUAL ACUITY REDUCED [None]
